FAERS Safety Report 5396748-5 (Version None)
Quarter: 2007Q3

REPORT INFORMATION
  Report Type: 
  Country: None (occurrence: None)
  Receive Date: 20070725
  Receipt Date: 20070713
  Transmission Date: 20080115
  Serious: Yes (Death, Other)
  Sender: FDA-Public Use
  Company Number: JP-SANOFI-SYNTHELABO-A01200707006

PATIENT
  Sex: Male
  Weight: 46 kg

DRUGS (6)
  1. BAKTAR [Concomitant]
     Route: 048
     Dates: start: 20070611, end: 20070613
  2. FLUOROURACIL [Suspect]
     Dosage: 450 MG/BODY=319.1 MG/M2 BOLUS TRHEN 2700 MG/BODY=1914.9 MG/M2 INFUSION D1-2
     Route: 042
     Dates: start: 20070424, end: 20070425
  3. FLUOROURACIL [Suspect]
     Dosage: 2400 MG/BODY=1702.1 MG/M2 INFUSION D1-2
     Route: 042
     Dates: start: 20070609, end: 20070610
  4. LEUCOVORIN CALCIUM [Suspect]
     Dosage: 280 MG/BODY=198.6 MG/M2 INFUSION D1
     Route: 042
     Dates: start: 20070605, end: 20070605
  5. OXALIPLATIN [Suspect]
     Indication: RECTAL CANCER
     Dosage: 110 MG/BODY=78 MG/M2
     Route: 042
     Dates: start: 20070424, end: 20070424
  6. OXALIPLATIN [Suspect]
     Dosage: 70 MG/BODY=49.6 MG/M2 INFUSION D1
     Route: 041
     Dates: start: 20070605, end: 20070605

REACTIONS (3)
  - INTERSTITIAL LUNG DISEASE [None]
  - PNEUMONIA [None]
  - PNEUMOTHORAX [None]
